FAERS Safety Report 13103727 (Version 1)
Quarter: 2017Q1

REPORT INFORMATION
  Report Type: Report from Study
  Country: HK (occurrence: HK)
  Receive Date: 20170111
  Receipt Date: 20170111
  Transmission Date: 20170428
  Serious: Yes (Other)
  Sender: FDA-Public Use
  Company Number: HK-CIPLA LTD.-2017AU00217

PATIENT

DRUGS (6)
  1. OLANZAPINE. [Suspect]
     Active Substance: OLANZAPINE
     Indication: SEDATION
     Dosage: 5 MG, UNK
     Route: 040
  2. MIDAZOLAM [Suspect]
     Active Substance: MIDAZOLAM HYDROCHLORIDE
     Dosage: UNK, INCREMENTAL DOSES
     Route: 042
  3. OLANZAPINE. [Suspect]
     Active Substance: OLANZAPINE
     Indication: AGITATION
  4. MIDAZOLAM [Suspect]
     Active Substance: MIDAZOLAM HYDROCHLORIDE
     Indication: SEDATION
     Dosage: UNK
     Route: 042
  5. PLACEBO-DROPERIDOL [Suspect]
     Active Substance: DROPERIDOL
     Indication: SEDATION
  6. PLACEBO-DROPERIDOL [Suspect]
     Active Substance: DROPERIDOL
     Indication: AGITATION
     Dosage: UNK
     Route: 040

REACTIONS (1)
  - Electrocardiogram QT prolonged [Unknown]
